FAERS Safety Report 18455687 (Version 4)
Quarter: 2021Q2

REPORT INFORMATION
  Report Type: Report from Study
  Country: CA (occurrence: CA)
  Receive Date: 20201103
  Receipt Date: 20210419
  Transmission Date: 20210717
  Serious: Yes (Hospitalization)
  Sender: FDA-Public Use
  Company Number: CA-UCBSA-2020043009

PATIENT
  Age: 59 Year
  Sex: Female

DRUGS (3)
  1. CERTOLIZUMAB PEGOL AUTOCLICKS [Suspect]
     Active Substance: CERTOLIZUMAB PEGOL
     Indication: RHEUMATOID ARTHRITIS
     Dosage: 400 MILLIGRAM, EV 2 WEEKS(QOW)
     Route: 058
     Dates: start: 20200922, end: 2020
  2. CERTOLIZUMAB PEGOL AUTOCLICKS [Suspect]
     Active Substance: CERTOLIZUMAB PEGOL
     Dosage: 200 MILLIGRAM, EV 2 WEEKS(QOW)
     Route: 058
  3. CERTOLIZUMAB PEGOL AUTOCLICKS [Suspect]
     Active Substance: CERTOLIZUMAB PEGOL
     Dosage: 200 MILLIGRAM, EVERY 10 DAYS
     Route: 058
     Dates: start: 20210205

REACTIONS (9)
  - Weight decreased [Unknown]
  - Asthenia [Not Recovered/Not Resolved]
  - Hypoxia [Recovering/Resolving]
  - Pain [Not Recovered/Not Resolved]
  - Fatigue [Unknown]
  - Illness [Recovering/Resolving]
  - Dyspnoea [Recovering/Resolving]
  - Therapeutic response shortened [Unknown]
  - Product use issue [Unknown]

NARRATIVE: CASE EVENT DATE: 2020
